FAERS Safety Report 7723274-8 (Version None)
Quarter: 2011Q3

REPORT INFORMATION
  Report Type: 
  Country: None (occurrence: None)
  Receive Date: 20110901
  Receipt Date: 20110825
  Transmission Date: 20111222
  Serious: Yes (Life-Threatening, Other)
  Sender: FDA-Public Use
  Company Number: JP-PFIZER INC-2011193065

PATIENT
  Age: 45 Year
  Sex: Female

DRUGS (9)
  1. PANTOL [Concomitant]
  2. BISOLVON [Concomitant]
  3. ZYVOX [Suspect]
     Indication: STAPHYLOCOCCAL SEPSIS
     Dosage: 600 MG, 2X/DAY
     Route: 041
     Dates: start: 20110807, end: 20110809
  4. MAGNESIUM SULFATE [Concomitant]
  5. DIPOTASSIUM PHOSPHATE [Concomitant]
  6. ASPARA K [Concomitant]
  7. ZOSYN [Concomitant]
  8. ACETAMINOPHEN [Concomitant]
  9. MULTIVITAMIN ADDITIVE [Concomitant]

REACTIONS (3)
  - LACTIC ACIDOSIS [None]
  - SHOCK [None]
  - GASTROINTESTINAL HAEMORRHAGE [None]
